FAERS Safety Report 12256177 (Version 2)
Quarter: 2016Q2

REPORT INFORMATION
  Report Type: Spontaneous
  Country: US (occurrence: US)
  Receive Date: 20160412
  Receipt Date: 20160427
  Transmission Date: 20160815
  Serious: Yes (Hospitalization)
  Sender: FDA-Public Use
  Company Number: US-PFIZER INC-2016197486

PATIENT
  Age: 60 Year
  Sex: Female
  Weight: 89.34 kg

DRUGS (1)
  1. DOXYCYCLINE HYCLATE. [Suspect]
     Active Substance: DOXYCYCLINE HYCLATE
     Indication: WOUND
     Dosage: UNK
     Dates: start: 2016, end: 2016

REACTIONS (1)
  - Drug ineffective [Unknown]
